FAERS Safety Report 14689737 (Version 1)
Quarter: 2018Q1

REPORT INFORMATION
  Report Type: Spontaneous
  Country: US (occurrence: US)
  Receive Date: 20180327
  Receipt Date: 20180327
  Transmission Date: 20180509
  Serious: Yes (Other)
  Sender: FDA-Public Use
  Company Number: None

PATIENT
  Age: 20 Year
  Sex: Female
  Weight: 85.5 kg

DRUGS (5)
  1. TERCONOZOLE VAGINAL CREAM 0.8% [Suspect]
     Active Substance: TERCONAZOLE
     Indication: FUNGAL INFECTION
     Dosage: ?          QUANTITY:1 APPLICATORFUL;?
     Route: 067
     Dates: start: 20180313, end: 20180314
  2. TAMIFLU [Concomitant]
     Active Substance: OSELTAMIVIR PHOSPHATE
  3. PRENATAL VITAMIN [Concomitant]
     Active Substance: VITAMINS
  4. CALCIUM [Concomitant]
     Active Substance: CALCIUM
  5. TYLENOL [Concomitant]
     Active Substance: ACETAMINOPHEN

REACTIONS (4)
  - Abdominal pain lower [None]
  - Exposure during pregnancy [None]
  - Abortion spontaneous [None]
  - Crying [None]

NARRATIVE: CASE EVENT DATE: 20180313
